FAERS Safety Report 25679691 (Version 2)
Quarter: 2025Q3

REPORT INFORMATION
  Report Type: Spontaneous
  Country: US (occurrence: US)
  Receive Date: 20250814
  Receipt Date: 20250902
  Transmission Date: 20251021
  Serious: No
  Sender: LEO PHARM
  Company Number: US-LEO Pharma-382076

PATIENT
  Age: 18 Year
  Sex: Female

DRUGS (1)
  1. ADBRY [Suspect]
     Active Substance: TRALOKINUMAB-LDRM
     Indication: Dermatitis atopic
     Dosage: TREATMENT IS ONGOING
     Route: 058
     Dates: start: 202507

REACTIONS (6)
  - Dermatitis atopic [Not Recovered/Not Resolved]
  - Photophobia [Unknown]
  - Eye pain [Unknown]
  - Lacrimation increased [Unknown]
  - Eye irritation [Unknown]
  - Ocular hyperaemia [Recovering/Resolving]
